FAERS Safety Report 9169051 (Version 1)
Quarter: 2013Q1

REPORT INFORMATION
  Report Type: Spontaneous
  Country: US (occurrence: US)
  Receive Date: 20130318
  Receipt Date: 20130318
  Transmission Date: 20140127
  Serious: No
  Sender: FDA-Public Use
  Company Number: US-009507513-1303USA008252

PATIENT
  Age: 6 Year
  Sex: Male
  Weight: 34.47 kg

DRUGS (2)
  1. CLARITIN ORAL SOLUTION [Suspect]
     Indication: HYPERSENSITIVITY
     Dosage: 5 MG, PRN
     Route: 048
  2. CLARITIN ORAL SOLUTION [Suspect]
     Dosage: 20 MG, ONCE
     Route: 048
     Dates: start: 20130314

REACTIONS (2)
  - Overdose [Recovering/Resolving]
  - Accidental exposure to product by child [Recovering/Resolving]
